FAERS Safety Report 11423645 (Version 1)
Quarter: 2015Q3

REPORT INFORMATION
  Report Type: Spontaneous
  Country: US (occurrence: US)
  Receive Date: 20150827
  Receipt Date: 20150827
  Transmission Date: 20151125
  Serious: Yes (Hospitalization)
  Sender: FDA-Public Use
  Company Number: US-ASTRAZENECA-2015SE80590

PATIENT
  Sex: Female

DRUGS (2)
  1. SYMBICORT [Suspect]
     Active Substance: BUDESONIDE\FORMOTEROL FUMARATE DIHYDRATE
     Dosage: FREQUENCY UNKNOWN
     Route: 055
  2. PREDNISONE. [Concomitant]
     Active Substance: PREDNISONE

REACTIONS (7)
  - Irritability [Unknown]
  - Drug dose omission [Unknown]
  - Fear [Unknown]
  - Aspiration [Unknown]
  - Product quality issue [Unknown]
  - Fatigue [Unknown]
  - Asthma [Unknown]
